FAERS Safety Report 7183611-2 (Version None)
Quarter: 2010Q4

REPORT INFORMATION
  Report Type: 
  Country: None (occurrence: None)
  Receive Date: 20101220
  Receipt Date: 20101220
  Transmission Date: 20110411
  Serious: Yes (Hospitalization)
  Sender: FDA-Public Use
  Company Number: None

PATIENT
  Age: 62 Year
  Sex: Female
  Weight: 73.6 kg

DRUGS (25)
  1. COUMADIN [Suspect]
     Indication: DEEP VEIN THROMBOSIS
     Dosage: PO  CHRONIC W/RECENT D/C
     Route: 048
  2. COUMADIN [Suspect]
     Indication: JOINT SWELLING
     Dosage: PO  CHRONIC W/RECENT D/C
     Route: 048
  3. DOXYCYCLINE [Suspect]
     Indication: ARTHRALGIA
     Dosage: 100 MG BID PO
     Route: 048
     Dates: start: 20100718
  4. STRATTERA [Concomitant]
  5. DIPROLENE [Concomitant]
  6. CARISOPRODOL [Concomitant]
  7. ATARAX [Concomitant]
  8. ZYDONE [Concomitant]
  9. SUMATRIPTAN [Concomitant]
  10. LOVAZA [Concomitant]
  11. KLONOPIN [Concomitant]
  12. ZOLOFT [Concomitant]
  13. LEVOCET K [Concomitant]
  14. VIT E [Concomitant]
  15. WELLBUTRIN XL [Concomitant]
  16. AMBIEN [Concomitant]
  17. CONCERTA [Concomitant]
  18. ALUPENT [Concomitant]
  19. DOXYCYCLINE [Concomitant]
  20. PSEUDOEPHRINE [Concomitant]
  21. ZOFRAN [Concomitant]
  22. FOLIC ACID [Concomitant]
  23. CA [Concomitant]
  24. HYDROCODONE [Concomitant]
  25. VIT [Concomitant]

REACTIONS (3)
  - ECCHYMOSIS [None]
  - HAEMATOMA [None]
  - HAEMORRHAGIC ANAEMIA [None]
